FAERS Safety Report 7658566-4 (Version None)
Quarter: 2011Q3

REPORT INFORMATION
  Report Type: 
  Country: None (occurrence: None)
  Receive Date: 20110802
  Receipt Date: 20110718
  Transmission Date: 20111222
  Serious: Yes (Other)
  Sender: FDA-Public Use
  Company Number: UCM201107-000031

PATIENT
  Age: 74 Year
  Sex: Female
  Weight: 77.1115 kg

DRUGS (7)
  1. GLYBURIDE [Concomitant]
  2. DIOVAN (TABLETS) [Concomitant]
  3. LIPITOR [Concomitant]
  4. CLONIDINE [Suspect]
     Indication: HYPERTENSION
     Dosage: 0.2 MG TWICE DAILY, ORAL, 0.1 MG TWICE DAILY,  ORAL,
     Route: 048
  5. ATENOLOL [Concomitant]
  6. PLAVIX [Concomitant]
  7. ASPIRIN [Concomitant]

REACTIONS (4)
  - CIRCUMSTANCE OR INFORMATION CAPABLE OF LEADING TO MEDICATION ERROR [None]
  - DIZZINESS [None]
  - HYPOTENSION [None]
  - BLOOD GLUCOSE INCREASED [None]
